FAERS Safety Report 16464161 (Version 1)
Quarter: 2019Q2

REPORT INFORMATION
  Report Type: Spontaneous
  Country: FR (occurrence: FR)
  Receive Date: 20190621
  Receipt Date: 20190621
  Transmission Date: 20190711
  Serious: Yes (Hospitalization)
  Sender: FDA-Public Use
  Company Number: FR-009507513-2006-150599-NL

PATIENT
  Age: 24 Year
  Sex: Female
  Weight: 51 kg

DRUGS (6)
  1. GONADOTROPHINE CHORIONIQUE ENDO 1500 UI/1ML [Suspect]
     Active Substance: GONADOTROPHIN, CHORIONIC
     Indication: IN VITRO FERTILISATION
     Dosage: UNK
     Route: 030
     Dates: end: 20060930
  2. ASPEGIC [Concomitant]
     Dosage: 100 MG, QD
  3. UTROGESTAN [Concomitant]
     Active Substance: PROGESTERONE
     Dosage: UNK
     Route: 048
     Dates: start: 20061005, end: 20061016
  4. PROMETRIUM [Concomitant]
     Active Substance: PROGESTERONE
     Dosage: UNK
     Route: 048
     Dates: start: 20061005, end: 20061016
  5. GONAL-F [Suspect]
     Active Substance: FOLLITROPIN
     Indication: IN VITRO FERTILISATION
     Dosage: UNK
     Route: 058
  6. DECAPEPTYL (ACETATE) [Suspect]
     Active Substance: TRIPTORELIN ACETATE
     Indication: IN VITRO FERTILISATION
     Dosage: UNK
     Route: 030

REACTIONS (3)
  - Vomiting [Recovered/Resolved]
  - Abdominal pain [Recovered/Resolved]
  - Ovarian hyperstimulation syndrome [Recovered/Resolved]

NARRATIVE: CASE EVENT DATE: 20061013
